FAERS Safety Report 5451045-4 (Version None)
Quarter: 2007Q3

REPORT INFORMATION
  Report Type: 
  Country: None (occurrence: None)
  Receive Date: 20070911
  Receipt Date: 20070830
  Transmission Date: 20080115
  Serious: Yes (Death, Life-Threatening, Hospitalization)
  Sender: FDA-Public Use
  Company Number: 430003M07FRA

PATIENT
  Age: 17 Year
  Sex: Male

DRUGS (23)
  1. NOVANTRONE [Suspect]
     Indication: ACUTE MYELOID LEUKAEMIA
     Dosage: 20 MG, 1 IN 1 DAYS, INTRAVENOUS
     Route: 042
     Dates: start: 20070425, end: 20070429
  2. METHOTREXATE [Suspect]
     Indication: ACUTE MYELOID LEUKAEMIA
     Dosage: 15 MG, INTRATHECAL
     Route: 037
     Dates: start: 20070427, end: 20070427
  3. METHOTREXATE [Suspect]
     Indication: ACUTE MYELOID LEUKAEMIA
     Dosage: 15 MG, INTRATHECAL
     Route: 037
     Dates: start: 20070509, end: 20070509
  4. AMIKACIN [Suspect]
     Indication: BRONCHOPULMONARY ASPERGILLOSIS
     Dosage: 1 G, 1 IN 1 DAYS, INTRAVENOUS NOT OTHERWISE SPECIFIED)
     Route: 042
     Dates: start: 20070520, end: 20070523
  5. AMSIDINE (AMSACRINE) [Suspect]
     Indication: ACUTE MYELOID LEUKAEMIA
     Dosage: 174 MG, 1 IN 1 DAYS, INTRAVENOUS (NOT OTHERWISE SPECIFIED)
     Route: 042
     Dates: start: 20070516, end: 20070518
  6. CYTARABINE [Suspect]
     Indication: ACUTE MYELOID LEUKAEMIA
     Dosage: SEE IMAGE
     Route: 037
     Dates: start: 20070424, end: 20070424
  7. CYTARABINE [Suspect]
     Indication: ACUTE MYELOID LEUKAEMIA
     Dosage: SEE IMAGE
     Route: 037
     Dates: start: 20070427, end: 20070427
  8. CYTARABINE [Suspect]
     Indication: ACUTE MYELOID LEUKAEMIA
     Dosage: SEE IMAGE
     Route: 037
     Dates: start: 20070425, end: 20070501
  9. CYTARABINE [Suspect]
     Indication: ACUTE MYELOID LEUKAEMIA
     Dosage: SEE IMAGE
     Route: 037
     Dates: start: 20070509, end: 20070509
  10. CYTARABINE [Suspect]
     Indication: ACUTE MYELOID LEUKAEMIA
     Dosage: SEE IMAGE
     Route: 037
     Dates: start: 20070516, end: 20070518
  11. CANCIDAS [Suspect]
     Indication: ASPERGILLOSIS
     Dosage: 50 MG, 1 IN 1 DAYS, INTRAVENOUS
     Route: 042
     Dates: start: 20070519, end: 20070523
  12. CERUBIDINE [Suspect]
     Indication: ACUTE MYELOID LEUKAEMIA
     Dosage: 104 MG, 1 IN 1 DAYS, INTRAVENOUS (NOT OTHERWISE SPECIFIED)
     Route: 042
     Dates: start: 20070424, end: 20070424
  13. FLAGYL [Suspect]
     Indication: BRONCHOPULMONARY ASPERGILLOSIS
     Dosage: 500, 3 IN 1 DAYS, INTRAVENOUS  (NOT OTHERWISE SPECIFIED)
     Route: 042
     Dates: start: 20070511, end: 20070524
  14. CEFTAZIDIME PENTAHYDRATE [Suspect]
     Dosage: 2 G, 2 IN 1 DAYS, INTRAVENOUS (NOT OTHERWISE SPECIFIED)
     Route: 042
     Dates: start: 20070520, end: 20070524
  15. FUNGIZONE [Suspect]
     Indication: PYREXIA
     Dates: start: 20070515, end: 20070516
  16. HYDREA [Suspect]
     Indication: ACUTE MYELOID LEUKAEMIA
     Dosage: 3000 MG, 1 IN 1 DAYS, ORAL, 1500 MG, 1 IN 1 DAYS, ORAL
     Route: 048
     Dates: start: 20070424, end: 20070424
  17. HYDREA [Suspect]
     Indication: ACUTE MYELOID LEUKAEMIA
     Dosage: 3000 MG, 1 IN 1 DAYS, ORAL, 1500 MG, 1 IN 1 DAYS, ORAL
     Route: 048
     Dates: start: 20070425, end: 20070425
  18. PURINETHOL [Suspect]
     Indication: ACUTE MYELOID LEUKAEMIA
     Dosage: 50 MG, 3 IN 1 DAYS, ORAL
     Route: 048
     Dates: start: 20070423, end: 20070423
  19. TAZOCILLINE (PIP/TAZO) [Suspect]
     Indication: PYREXIA
     Dosage: INTRAVENOUS (NOT OTHERWISE SPECIFIED)
     Route: 042
     Dates: start: 20070430, end: 20070520
  20. TIENAM (CILASTATIN W/IMIPENEM) [Suspect]
     Indication: BRONCHOPULMONARY ASPERGILLOSIS
     Dosage: 500 MG, 4 IN 1 DAYS, INTRAVENOUS (NOT OTHERWISE SPECIFIED)
     Route: 042
     Dates: start: 20070518, end: 20070520
  21. VANCOMYCIN [Suspect]
     Indication: BRONCHOPULMONARY ASPERGILLOSIS
     Dates: start: 20070511, end: 20070523
  22. VANCOMYCIN [Suspect]
     Indication: BRONCHOPULMONARY ASPERGILLOSIS
     Dates: start: 20070516
  23. VFEND [Suspect]
     Indication: BRONCHOPULMONARY ASPERGILLOSIS
     Dosage: 300 MG, 2 IN 1 DAYS, INTRAVENOUS (NOT OTHERWISE SPECIFIED)
     Route: 042
     Dates: start: 20070516, end: 20070519

REACTIONS (15)
  - BRONCHOPULMONARY ASPERGILLOSIS [None]
  - CARDIO-RESPIRATORY ARREST [None]
  - CEREBELLAR SYNDROME [None]
  - COMA [None]
  - CONFUSIONAL STATE [None]
  - CONVULSION [None]
  - DECEREBRATION [None]
  - EYE MOVEMENT DISORDER [None]
  - LIVER DISORDER [None]
  - LYMPHADENITIS [None]
  - MYDRIASIS [None]
  - PAROXYSMAL ARRHYTHMIA [None]
  - SINUS BRADYCARDIA [None]
  - TACHYPNOEA [None]
  - VENTRICULAR FIBRILLATION [None]
